FAERS Safety Report 11805282 (Version 1)
Quarter: 2015Q4

REPORT INFORMATION
  Report Type: Spontaneous
  Country: US (occurrence: US)
  Receive Date: 20151206
  Receipt Date: 20151206
  Transmission Date: 20160305
  Serious: No
  Sender: FDA-Public Use
  Company Number: US-ASTRAZENECA-2015SF19384

PATIENT
  Age: 30946 Day
  Sex: Female
  Weight: 45.4 kg

DRUGS (1)
  1. IRESSA [Suspect]
     Active Substance: GEFITINIB
     Indication: LUNG NEOPLASM MALIGNANT
     Route: 048
     Dates: start: 20150903

REACTIONS (6)
  - Nasal dryness [Unknown]
  - Nasal discomfort [Unknown]
  - Dyspnoea [Unknown]
  - Epistaxis [Unknown]
  - Oropharyngeal pain [Unknown]
  - Dry eye [Unknown]

NARRATIVE: CASE EVENT DATE: 20151109
